FAERS Safety Report 9465550 (Version 1)
Quarter: 2013Q3

REPORT INFORMATION
  Report Type: Spontaneous
  Country: TR (occurrence: TR)
  Receive Date: 20130820
  Receipt Date: 20130820
  Transmission Date: 20140515
  Serious: Yes (Other)
  Sender: FDA-Public Use
  Company Number: TR-009507513-1308TUR007062

PATIENT
  Age: 57 Year
  Sex: Female

DRUGS (1)
  1. DIPROSPAN [Suspect]
     Indication: DIABETES MELLITUS
     Dosage: 2 AMPOULES IN EVERY 3 MONTHS
     Dates: start: 201008

REACTIONS (1)
  - Pulmonary embolism [Unknown]
